FAERS Safety Report 26144068 (Version 1)
Quarter: 2025Q4

REPORT INFORMATION
  Report Type: Spontaneous
  Country: US (occurrence: US)
  Receive Date: 20251211
  Receipt Date: 20251211
  Transmission Date: 20260118
  Serious: Yes (Death, Other)
  Sender: RANBAXY
  Company Number: US-SUN PHARMACEUTICAL INDUSTRIES INC-2025R1-540319

PATIENT
  Age: 72 Year
  Sex: Male

DRUGS (1)
  1. CLOZAPINE [Suspect]
     Active Substance: CLOZAPINE
     Indication: Schizophrenia
     Dosage: UNK
     Route: 065

REACTIONS (7)
  - Norovirus infection [Fatal]
  - Sepsis [Fatal]
  - Small intestinal obstruction [Fatal]
  - Ileus [Fatal]
  - Abdominal pain [Fatal]
  - Pyrexia [Fatal]
  - Diarrhoea [Fatal]
